FAERS Safety Report 16929810 (Version 1)
Quarter: 2019Q4

REPORT INFORMATION
  Report Type: Spontaneous
  Country: US (occurrence: US)
  Receive Date: 20190826
  Receipt Date: 20190826
  Transmission Date: 20200122
  Serious: No
  Sender: FDA-Public Use
  Company Number: None

PATIENT
  Age: 15 Year
  Sex: Female

DRUGS (1)
  1. LUPRON DEPOT-PED [Suspect]
     Active Substance: LEUPROLIDE ACETATE
     Dosage: ?          OTHER DOSE:11.25MG;OTHER FREQUENCY:OTHER;?
     Route: 030
     Dates: start: 201908

REACTIONS (2)
  - Off label use [None]
  - Trans-sexualism [None]

NARRATIVE: CASE EVENT DATE: 20190826
